FAERS Safety Report 10797024 (Version 1)
Quarter: 2015Q1

REPORT INFORMATION
  Report Type: Report from Study
  Country: US (occurrence: US)
  Receive Date: 20150216
  Receipt Date: 20150216
  Transmission Date: 20150721
  Serious: No
  Sender: FDA-Public Use
  Company Number: US-ABBVIE-14K-163-1211271-00

PATIENT
  Age: 61 Year
  Sex: Female

DRUGS (8)
  1. DIAZEPAM. [Concomitant]
     Active Substance: DIAZEPAM
     Indication: BLOOD CHOLESTEROL INCREASED
     Dosage: AT BEDTIME
  2. HUMIRA [Suspect]
     Active Substance: ADALIMUMAB
     Indication: RHEUMATOID ARTHRITIS
     Dates: start: 201312
  3. HYDROCODONE [Concomitant]
     Active Substance: HYDROCODONE
     Indication: BACK PAIN
     Dosage: TAKE ONE TO AS NEEDED, USUALLY IN AM AND PM
  4. LISINOPRIL. [Concomitant]
     Active Substance: LISINOPRIL
     Indication: HYPERTENSION
  5. BABY ASPIRIN [Concomitant]
     Active Substance: ASPIRIN
     Indication: PROPHYLAXIS
  6. DIAZEPAM. [Concomitant]
     Active Substance: DIAZEPAM
     Indication: ANXIETY
  7. OLANZAPINE. [Concomitant]
     Active Substance: OLANZAPINE
     Indication: INSOMNIA
     Dosage: AT BEDTIME
  8. CARVEDILOL. [Concomitant]
     Active Substance: CARVEDILOL
     Indication: HYPERTENSION

REACTIONS (10)
  - Anxiety [Not Recovered/Not Resolved]
  - Gait disturbance [Unknown]
  - Device issue [Unknown]
  - Pain in extremity [Unknown]
  - Drug effect decreased [Unknown]
  - Injection site haemorrhage [Not Recovered/Not Resolved]
  - Nervousness [Not Recovered/Not Resolved]
  - Inappropriate schedule of drug administration [Unknown]
  - Incorrect dose administered [Unknown]
  - Arthralgia [Unknown]

NARRATIVE: CASE EVENT DATE: 201312
